FAERS Safety Report 4487976-1 (Version None)
Quarter: 2004Q4

REPORT INFORMATION
  Report Type: 
  Country: None (occurrence: None)
  Receive Date: 20041028
  Receipt Date: 20040917
  Transmission Date: 20050328
  Serious: Yes (Death)
  Sender: FDA-Public Use
  Company Number: GB-SOLVAY-00204003424

PATIENT
  Age: 32048 Day
  Sex: Female

DRUGS (1)
  1. BLINDED THERAPY [PERINDOPRIL VS PLACEBO] [Suspect]
     Indication: CARDIAC FAILURE CONGESTIVE
     Dosage: DAILY DOSE: UNK.
     Route: 048
     Dates: start: 20020925, end: 20030819

REACTIONS (1)
  - CEREBROVASCULAR ACCIDENT [None]
